FAERS Safety Report 4720488-6 (Version None)
Quarter: 2005Q3

REPORT INFORMATION
  Report Type: 
  Country: None (occurrence: None)
  Receive Date: 20050721
  Receipt Date: 20041111
  Transmission Date: 20060218
  Serious: No
  Sender: FDA-Public Use
  Company Number: US-BRISTOL-MYERS SQUIBB COMPANY-12764270

PATIENT
  Sex: Male

DRUGS (1)
  1. GLYBURIDE AND METFORMIN HCL [Suspect]
     Dosage: 12.5 MG / 250 MG

REACTIONS (1)
  - DRUG INEFFECTIVE [None]
